FAERS Safety Report 9553454 (Version 1)
Quarter: 2013Q2

REPORT INFORMATION
  Report Type: Spontaneous
  Country: US (occurrence: None)
  Receive Date: 20130426
  Receipt Date: 20130426
  Transmission Date: 20140414
  Serious: Yes (Hospitalization)
  Sender: FDA-Public Use
  Company Number: 2012AM006454

PATIENT
  Age: 62 Year
  Sex: Female

DRUGS (5)
  1. SYMLINPEN [Suspect]
     Indication: PRODUCT USED FOR UNKNOWN INDICATION
     Route: 058
     Dates: start: 20120403
  2. INSULIN DETEMIR [Concomitant]
  3. METFORMIN [Concomitant]
  4. HUMALOG [Concomitant]
  5. JANUVIA [Concomitant]

REACTIONS (4)
  - Presyncope [None]
  - Hypotension [None]
  - Asthenia [None]
  - Dizziness [None]
